FAERS Safety Report 6142381-7 (Version None)
Quarter: 2009Q2

REPORT INFORMATION
  Report Type: 
  Country: None (occurrence: None)
  Receive Date: 20090403
  Receipt Date: 20090326
  Transmission Date: 20091009
  Serious: Yes (Other)
  Sender: FDA-Public Use
  Company Number: SE-JNJFOC-20090306572

PATIENT
  Age: 42 Year
  Sex: Female

DRUGS (3)
  1. TOPAMAX [Suspect]
     Route: 048
  2. TOPAMAX [Suspect]
     Indication: ANXIETY
     Route: 048
  3. SEROQUEL [Concomitant]
     Route: 065

REACTIONS (2)
  - APATHY [None]
  - SUICIDAL IDEATION [None]
